FAERS Safety Report 10166495 (Version 1)
Quarter: 2014Q2

REPORT INFORMATION
  Report Type: Spontaneous
  Country: US (occurrence: US)
  Receive Date: 20140512
  Receipt Date: 20140512
  Transmission Date: 20141212
  Serious: No
  Sender: FDA-Public Use
  Company Number: US-MYLANLABS-2014S1008177

PATIENT
  Sex: Male

DRUGS (5)
  1. MORPHINE SULFATE EXTENDED-RELEASE TABLETS [Suspect]
     Indication: BACK PAIN
  2. MORPHINE SULFATE EXTENDED-RELEASE TABLETS [Suspect]
     Indication: BACK PAIN
  3. OXYCODONE HYDROCHLORIDE TABLETS USP [Suspect]
  4. BENICAR [Suspect]
  5. SINGULAIR [Suspect]

REACTIONS (1)
  - Abdominal distension [Not Recovered/Not Resolved]
